FAERS Safety Report 8486695-4 (Version None)
Quarter: 2012Q3

REPORT INFORMATION
  Report Type: 
  Country: None (occurrence: None)
  Receive Date: 20120704
  Receipt Date: 20120628
  Transmission Date: 20120928
  Serious: Yes (Other)
  Sender: FDA-Public Use
  Company Number: US-AMGEN-USASP2012040231

PATIENT
  Age: 61 Year
  Sex: Male

DRUGS (3)
  1. TREXALL [Concomitant]
     Dosage: 1 MG, UNK
     Dates: start: 20120322
  2. ENBREL [Suspect]
     Indication: PSORIATIC ARTHROPATHY
     Dosage: 50 MG, QWK
     Dates: start: 20120412
  3. ENBREL [Suspect]
     Indication: PSORIASIS

REACTIONS (3)
  - TINNITUS [None]
  - EYELID SKIN DRYNESS [None]
  - DIZZINESS [None]
